FAERS Safety Report 6701280-X (Version None)
Quarter: 2010Q2

REPORT INFORMATION
  Report Type: 
  Country: None (occurrence: None)
  Receive Date: 20100428
  Receipt Date: 20100423
  Transmission Date: 20101027
  Serious: Yes (Death, Hospitalization)
  Sender: FDA-Public Use
  Company Number: IN-BRISTOL-MYERS SQUIBB COMPANY-15076839

PATIENT
  Age: 52 Year
  Sex: Male
  Weight: 50 kg

DRUGS (16)
  1. CISPLATIN [Suspect]
     Indication: NON-SMALL CELL LUNG CANCER
     Dosage: LAST DOSE: 08APR2010
     Route: 042
     Dates: start: 20100318
  2. ALIMTA [Suspect]
     Indication: NON-SMALL CELL LUNG CANCER
     Dosage: LAST DOSE: 08APR2010
     Route: 042
     Dates: start: 20100318
  3. FOLIC ACID [Concomitant]
     Indication: PROPHYLAXIS
     Dates: start: 20100219
  4. VITAMIN B-12 [Concomitant]
     Indication: PROPHYLAXIS
     Dates: start: 20100219, end: 20100219
  5. DEXAMETHASONE [Concomitant]
     Indication: PROPHYLAXIS
     Dates: start: 20100407, end: 20100409
  6. SELOKEN [Concomitant]
     Indication: HYPERTENSION
  7. TORSEMIDE [Concomitant]
     Indication: HYPERTENSION
     Dates: start: 20100302
  8. SPIRONOLACTONE [Concomitant]
     Indication: HYPERTENSION
     Dates: start: 20100302
  9. AMLODIPINE [Concomitant]
     Indication: HYPERTENSION
  10. TELMISARTAN [Concomitant]
     Indication: HYPERTENSION
  11. DOMSTAL [Concomitant]
     Dates: start: 20100408, end: 20100412
  12. LORAZEPAM [Concomitant]
     Dates: start: 20100408, end: 20100412
  13. ONDANSETRON [Concomitant]
     Dates: start: 20100408, end: 20100412
  14. DALACIN [Concomitant]
     Dates: start: 20100413
  15. NEUPOGEN [Concomitant]
     Dates: start: 20100414
  16. HYDROCORTISONE ACETATE [Concomitant]
     Dates: start: 20100415

REACTIONS (5)
  - DIARRHOEA [None]
  - FEBRILE NEUTROPENIA [None]
  - RENAL FAILURE ACUTE [None]
  - SEPTIC SHOCK [None]
  - VOMITING [None]
